FAERS Safety Report 7339081-4 (Version None)
Quarter: 2011Q1

REPORT INFORMATION
  Report Type: 
  Country: None (occurrence: None)
  Receive Date: 20110308
  Receipt Date: 20110225
  Transmission Date: 20110831
  Serious: Yes (Hospitalization, Other)
  Sender: FDA-Public Use
  Company Number: BR-PFIZER INC-2011040545

PATIENT
  Age: 51 Year
  Sex: Female
  Weight: 68 kg

DRUGS (13)
  1. DIAZEPAM [Suspect]
     Indication: INSOMNIA
     Dosage: UNK
     Route: 042
     Dates: start: 20090101
  2. FUROSEMIDE [Concomitant]
     Dosage: 40 MG, UNK
  3. SPIRONOLACTONE [Concomitant]
     Dosage: 25 MG, UNK
  4. CAPTOPRIL [Concomitant]
     Dosage: 25 MG, UNK
  5. SUSTRATE [Concomitant]
     Dosage: UNK
  6. ATENOLOL [Concomitant]
  7. LIPITOR [Suspect]
     Indication: BLOOD TRIGLYCERIDES
     Dosage: 20 MG, 1X/DAY
     Route: 048
     Dates: start: 20060101, end: 20110101
  8. LEVOZIN [Suspect]
     Dosage: 25 GTT, UNK
     Dates: start: 20090101
  9. CARBOLITIUM [Suspect]
     Dosage: 300 MG, UNK
     Dates: start: 20090101
  10. CLONAZEPAM [Concomitant]
     Dosage: 2 MG, UNK
     Dates: start: 20090101
  11. SERTRALINE [Concomitant]
     Indication: FIBROMYALGIA
     Dosage: 50 MG, UNK
  12. CIMETIDINE [Concomitant]
     Dosage: 200 MG, UNK
  13. AAS [Concomitant]

REACTIONS (10)
  - LOSS OF CONSCIOUSNESS [None]
  - MEMORY IMPAIRMENT [None]
  - ABDOMINAL DISTENSION [None]
  - DIARRHOEA [None]
  - PRURITUS [None]
  - INSOMNIA [None]
  - ABNORMAL BEHAVIOUR [None]
  - WEIGHT INCREASED [None]
  - HYPERSENSITIVITY [None]
  - DYSPEPSIA [None]
